APPROVED DRUG PRODUCT: MEFLOQUINE HYDROCHLORIDE
Active Ingredient: MEFLOQUINE HYDROCHLORIDE
Strength: 250MG
Dosage Form/Route: TABLET;ORAL
Application: A077699 | Product #001
Applicant: HIKMA INTERNATIONAL PHARMACEUTICALS LLC
Approved: Apr 21, 2010 | RLD: No | RS: No | Type: DISCN